FAERS Safety Report 9164522 (Version 1)
Quarter: 2013Q1

REPORT INFORMATION
  Report Type: Spontaneous
  Country: US (occurrence: US)
  Receive Date: 20130315
  Receipt Date: 20130315
  Transmission Date: 20140127
  Serious: Yes (Other)
  Sender: FDA-Public Use
  Company Number: PHEH2013US005855

PATIENT
  Sex: Female

DRUGS (7)
  1. RECLAST [Suspect]
     Indication: OSTEOPOROSIS
     Dosage: 5 MG, YEARLY
     Route: 042
  2. SINGULAIR [Concomitant]
     Dosage: UNK UKN, UNK
  3. ALEVE [Concomitant]
     Dosage: UNK UKN, UNK
  4. AMLODIPINE [Concomitant]
  5. DIOVAN [Concomitant]
  6. HYDROCODONE [Concomitant]
     Dosage: UNK UKN, UNK
  7. ZOLPIDEM [Concomitant]
     Dosage: UNK UKN, UNK

REACTIONS (1)
  - Osteonecrosis [Unknown]
